FAERS Safety Report 5962062-X (Version None)
Quarter: 2008Q4

REPORT INFORMATION
  Report Type: 
  Country: None (occurrence: None)
  Receive Date: 20081121
  Receipt Date: 20081112
  Transmission Date: 20090506
  Serious: Yes (Other)
  Sender: FDA-Public Use
  Company Number: PHBS2008AU06357

PATIENT
  Age: 23 Year
  Sex: Female

DRUGS (6)
  1. OXPRENOLOL [Suspect]
     Indication: HYPERTENSION
  2. HYDRALAZINE HCL [Suspect]
     Indication: HYPERTENSION
     Route: 048
  3. CALTRATE [Concomitant]
     Indication: HYPERTENSION
  4. EPOGEN [Concomitant]
  5. FOLATE SODIUM [Concomitant]
  6. IRON [Concomitant]

REACTIONS (12)
  - CAESAREAN SECTION [None]
  - CLONUS [None]
  - DRUG EXPOSURE DURING PREGNANCY [None]
  - HEADACHE [None]
  - HYPERKALAEMIA [None]
  - HYPERREFLEXIA [None]
  - HYPERTENSION [None]
  - NAUSEA [None]
  - PERITONEAL DIALYSIS [None]
  - PRE-ECLAMPSIA [None]
  - ULTRASOUND DOPPLER ABNORMAL [None]
  - VOMITING [None]
